FAERS Safety Report 8163179-4 (Version None)
Quarter: 2012Q1

REPORT INFORMATION
  Report Type: 
  Country: None (occurrence: None)
  Receive Date: 20120224
  Receipt Date: 20110627
  Transmission Date: 20120608
  Serious: No
  Sender: FDA-Public Use
  Company Number: US-PFIZER INC-K201100770

PATIENT
  Age: 68 Year
  Sex: Female

DRUGS (2)
  1. FLECTOR [Suspect]
     Indication: MUSCULOSKELETAL PAIN
     Dosage: SMALL SECTION OF PATCH FOR 11 HOURS, SINGLE
     Route: 061
     Dates: start: 20110621, end: 20110621
  2. FLECTOR [Suspect]
     Dosage: 1 PATCH FOR 11 HOURS, SINGLE
     Dates: start: 20110622, end: 20110623

REACTIONS (1)
  - APPLICATION SITE ERYTHEMA [None]
